FAERS Safety Report 8560215-8 (Version None)
Quarter: 2012Q3

REPORT INFORMATION
  Report Type: 
  Country: None (occurrence: None)
  Receive Date: 20120802
  Receipt Date: 20120725
  Transmission Date: 20120928
  Serious: Yes (Other)
  Sender: FDA-Public Use
  Company Number: JP-PFIZER INC-2012185634

PATIENT
  Sex: Female

DRUGS (3)
  1. AMIODARONE HCL [Suspect]
     Dosage: UNK
  2. RITODRINE HCL [Suspect]
     Indication: LONG QT SYNDROME CONGENITAL
  3. RITODRINE HCL [Suspect]
     Indication: BRADYCARDIA FOETAL
     Dosage: UNK

REACTIONS (2)
  - FOETAL DEATH [None]
  - MATERNAL EXPOSURE DURING PREGNANCY [None]
